FAERS Safety Report 6428600-8 (Version None)
Quarter: 2009Q4

REPORT INFORMATION
  Report Type: 
  Country: None (occurrence: None)
  Receive Date: 20091105
  Receipt Date: 20091026
  Transmission Date: 20100525
  Serious: Yes (Other)
  Sender: FDA-Public Use
  Company Number: CH-PFIZER INC-2009259291

PATIENT
  Age: 69 Year
  Sex: Male

DRUGS (10)
  1. ATORVASTATIN CALCIUM [Suspect]
     Indication: HYPERCHOLESTEROLAEMIA
     Dosage: 20 MG, 1X/DAY
     Route: 048
     Dates: start: 20060101
  2. ATORVASTATIN CALCIUM [Suspect]
     Dosage: 20 MG, 1X/DAY
     Route: 048
     Dates: start: 20080101, end: 20080101
  3. ATORVASTATIN CALCIUM [Suspect]
     Dosage: 20 MG, 1X/DAY
     Route: 048
     Dates: start: 20090101, end: 20090701
  4. LESCOL [Suspect]
     Dosage: UNK
     Dates: start: 20081001, end: 20090101
  5. EZETROL [Suspect]
     Dosage: UNK
     Route: 048
     Dates: start: 20081001, end: 20090701
  6. LIPANTHYL [Suspect]
  7. ASPIRIN [Concomitant]
     Dosage: 100 MG, 1X/DAY
     Route: 048
  8. PLAVIX [Concomitant]
     Dosage: 75 MG, 1X/DAY
     Route: 048
  9. NEBILET [Concomitant]
     Dosage: 5 MG, 1X/DAY
     Route: 048
  10. BLOPRESS [Concomitant]
     Dosage: 16 MG, 1X/DAY
     Route: 048

REACTIONS (2)
  - RESTLESS LEGS SYNDROME [None]
  - SLEEP APNOEA SYNDROME [None]
